FAERS Safety Report 23513364 (Version 1)
Quarter: 2024Q1

REPORT INFORMATION
  Report Type: Spontaneous
  Country: US (occurrence: None)
  Receive Date: 20240210
  Receipt Date: 20240210
  Transmission Date: 20240409
  Serious: Yes (Other)
  Sender: FDA-Public Use
  Company Number: None

PATIENT
  Age: 68 Year
  Sex: Female

DRUGS (13)
  1. XYWAV [Suspect]
     Active Substance: CALCIUM OXYBATE\MAGNESIUM OXYBATE\POTASSIUM OXYBATE\SODIUM OXYBATE
     Indication: Hypersomnia
     Dosage: OTHER QUANTITY : 2 DROP(S);?FREQUENCY : AT BEDTIME;?
     Route: 048
  2. ARMODAFINIL [Concomitant]
     Active Substance: ARMODAFINIL
  3. CYMBALTA [Concomitant]
     Active Substance: DULOXETINE HYDROCHLORIDE
  4. DEXTROAMPHETAMINE [Concomitant]
     Active Substance: DEXTROAMPHETAMINE
  5. LEVOTHYROXINE [Concomitant]
     Active Substance: LEVOTHYROXINE\LEVOTHYROXINE SODIUM
  6. XARELTO [Concomitant]
     Active Substance: RIVAROXABAN
  7. CRANBERRY [Concomitant]
     Active Substance: CRANBERRY
  8. VITAMIN D [Concomitant]
     Active Substance: VITAMIN D NOS
  9. OMEGA 3 [Concomitant]
     Active Substance: CAPSAICIN
  10. IRON [Concomitant]
     Active Substance: IRON
  11. CALCIUM [Concomitant]
     Active Substance: CALCIUM
  12. VITAMIN B12 [Concomitant]
     Active Substance: CYANOCOBALAMIN
  13. VITAMINS [Concomitant]
     Active Substance: VITAMINS

REACTIONS (5)
  - Foot fracture [None]
  - Fall [None]
  - Head injury [None]
  - Feeling drunk [None]
  - Dizziness [None]

NARRATIVE: CASE EVENT DATE: 20230620
